FAERS Safety Report 9377841 (Version 1)
Quarter: 2013Q3

REPORT INFORMATION
  Report Type: Spontaneous
  Country: US (occurrence: US)
  Receive Date: 20130701
  Receipt Date: 20130701
  Transmission Date: 20140515
  Serious: No
  Sender: FDA-Public Use
  Company Number: US-009507513-1306USA014503

PATIENT
  Sex: Female
  Weight: 56.69 kg

DRUGS (6)
  1. MIRALAX [Suspect]
     Indication: CONSTIPATION
     Dosage: UNK, UNKNOWN
     Route: 048
  2. MIRALAX [Suspect]
     Indication: FAECES HARD
  3. MIRALAX [Suspect]
     Indication: MEDICAL OBSERVATION
  4. OXYBUTYNIN [Concomitant]
     Indication: BLADDER DISORDER
     Dosage: UNK, UNKNOWN
  5. CELEXA [Concomitant]
     Indication: ANXIETY
     Dosage: UNK, UNKNOWN
  6. BIOTIN [Concomitant]
     Indication: PRODUCT USED FOR UNKNOWN INDICATION
     Dosage: UNK, UNKNOWN

REACTIONS (1)
  - Drug effect decreased [Unknown]
